FAERS Safety Report 19230805 (Version 1)
Quarter: 2021Q2

REPORT INFORMATION
  Report Type: Spontaneous
  Country: US (occurrence: US)
  Receive Date: 20210507
  Receipt Date: 20210507
  Transmission Date: 20210717
  Serious: No
  Sender: FDA-Public Use
  Company Number: None

PATIENT
  Sex: Female
  Weight: 72 kg

DRUGS (13)
  1. LORAZEPAM. [Concomitant]
     Active Substance: LORAZEPAM
  2. MULTIVITAMIN [Concomitant]
     Active Substance: VITAMINS
  3. NASAL LIDOCAINE [Concomitant]
  4. LYSINE [Concomitant]
     Active Substance: LYSINE
  5. LITHIUM OROTATE [Concomitant]
     Active Substance: LITHIUM OROTATE
  6. LORATADINE. [Concomitant]
     Active Substance: LORATADINE
  7. MANSESIUM GLUCINATE [Concomitant]
  8. VITAMIN B COMPLEX [Concomitant]
     Active Substance: CYANOCOBALAMIN\DEXPANTHENOL\NIACINAMIDE\PYRIDOXINE HYDROCHLORIDE\RIBOFLAVIN 5^-PHOSPHATE SODIUM\THIAMINE HYDROCHLORIDE\VITAMIN B COMPLEX
  9. JULEBER BIRTH CONTROL [Concomitant]
  10. AMITRIPTYLINE [Concomitant]
     Active Substance: AMITRIPTYLINE
  11. OMEGA?3 FISH OIL [Concomitant]
     Active Substance: FISH OIL\OMEGA-3 FATTY ACIDS
  12. EMGALITY [Suspect]
     Active Substance: GALCANEZUMAB-GNLM
     Indication: CLUSTER HEADACHE
     Dates: start: 20210318
  13. ZINC. [Concomitant]
     Active Substance: ZINC

REACTIONS (6)
  - Alopecia [None]
  - Weight increased [None]
  - Condition aggravated [None]
  - Dry skin [None]
  - Pruritus [None]
  - Gastrointestinal disorder [None]
